FAERS Safety Report 11352750 (Version 1)
Quarter: 2015Q3

REPORT INFORMATION
  Report Type: Spontaneous
  Country: US (occurrence: US)
  Receive Date: 20150807
  Receipt Date: 20150807
  Transmission Date: 20151125
  Serious: No
  Sender: FDA-Public Use
  Company Number: US-JNJFOC-20150211444

PATIENT
  Age: 65 Year
  Sex: Female
  Weight: 58.97 kg

DRUGS (5)
  1. WOMENS ROGAINE UNSCENTED [Suspect]
     Active Substance: MINOXIDIL
     Route: 061
  2. WOMENS ROGAINE UNSCENTED [Suspect]
     Active Substance: MINOXIDIL
     Indication: HAIR GROWTH ABNORMAL
     Dosage: HALF A CAPFUL ONCE EVERY NIGHT
     Route: 061
     Dates: start: 20150127, end: 20150210
  3. TELMISARTAN. [Concomitant]
     Active Substance: TELMISARTAN
     Indication: BLOOD PRESSURE MEASUREMENT
     Dosage: 80 MG A DAY FOR 10 YEARS
     Route: 065
  4. BIOTIN [Concomitant]
     Active Substance: BIOTIN
     Indication: HAIR GROWTH ABNORMAL
     Dosage: INTERVAL- ONE MONTH
     Route: 065
  5. BLACK COHOSH [Concomitant]
     Active Substance: BLACK COHOSH
     Indication: HOT FLUSH
     Route: 065

REACTIONS (9)
  - Underdose [Unknown]
  - Dizziness [Recovered/Resolved]
  - Incoherent [Recovered/Resolved]
  - Tinnitus [Unknown]
  - Disorientation [Recovered/Resolved]
  - Hypoaesthesia [Unknown]
  - Vision blurred [Unknown]
  - Aphthous ulcer [Unknown]
  - Cerebrovascular accident [Unknown]

NARRATIVE: CASE EVENT DATE: 20150127
